FAERS Safety Report 23808849 (Version 1)
Quarter: 2024Q2

REPORT INFORMATION
  Report Type: Spontaneous
  Country: DE (occurrence: DE)
  Receive Date: 20240502
  Receipt Date: 20240502
  Transmission Date: 20240716
  Serious: No
  Sender: FDA-Public Use
  Company Number: DE-PFIZER INC-PV202400051850

PATIENT
  Age: 5 Year
  Sex: Male

DRUGS (1)
  1. GENOTROPIN [Suspect]
     Active Substance: SOMATROPIN
     Dosage: 0.5 MG, DAILY
     Dates: start: 20230901, end: 20240419

REACTIONS (3)
  - Device physical property issue [Unknown]
  - Product reconstitution quality issue [Unknown]
  - Device delivery system issue [Unknown]
